FAERS Safety Report 7386604-5 (Version None)
Quarter: 2011Q1

REPORT INFORMATION
  Report Type: 
  Country: None (occurrence: None)
  Receive Date: 20110331
  Receipt Date: 20101217
  Transmission Date: 20110831
  Serious: Yes (Hospitalization)
  Sender: FDA-Public Use
  Company Number: US-BAYER-200934265NA

PATIENT
  Sex: Male

DRUGS (5)
  1. NEXAVAR [Suspect]
     Dosage: 400 MG, QD;PM
     Route: 048
     Dates: start: 20090909
  2. NEXAVAR [Suspect]
     Indication: HEPATIC NEOPLASM MALIGNANT
     Dosage: 400 MG, BID
     Route: 048
     Dates: start: 20090915, end: 20090925
  3. NEXAVAR [Suspect]
     Route: 048
     Dates: start: 20090928, end: 20091001
  4. NEXAVAR [Suspect]
     Dosage: Q PM
     Route: 048
     Dates: start: 20091005
  5. NEXAVAR [Suspect]
     Dosage: 200 MG, BID
     Route: 048
     Dates: start: 20091101

REACTIONS (8)
  - RASH [None]
  - HAEMORRHOIDS [None]
  - SKIN FISSURES [None]
  - BLISTER [None]
  - DIARRHOEA [None]
  - ABDOMINAL PAIN UPPER [None]
  - HOSPITALISATION [None]
  - RASH GENERALISED [None]
